FAERS Safety Report 5050663-5 (Version None)
Quarter: 2006Q2

REPORT INFORMATION
  Report Type: 
  Country: None (occurrence: None)
  Receive Date: 20060614
  Receipt Date: 20060320
  Transmission Date: 20061013
  Serious: Yes (Other)
  Sender: FDA-Public Use
  Company Number: 420593

PATIENT
  Age: 53 Year
  Sex: Female
  Weight: 47.2 kg

DRUGS (3)
  1. BONIVA [Suspect]
     Indication: OSTEOPOROSIS
     Dosage: 150 MG 1 PER MONTH ORAL
     Route: 048
     Dates: start: 20050804
  2. SYNTHROID [Concomitant]
  3. UNSPECIFIED DRUG [Concomitant]

REACTIONS (3)
  - CORNEAL DISORDER [None]
  - DYSPHAGIA [None]
  - GASTROOESOPHAGEAL REFLUX DISEASE [None]
